FAERS Safety Report 21817137 (Version 2)
Quarter: 2023Q1

REPORT INFORMATION
  Report Type: Spontaneous
  Country: CN (occurrence: CN)
  Receive Date: 20230104
  Receipt Date: 20230111
  Transmission Date: 20230418
  Serious: Yes (Hospitalization, Disabling, Other)
  Sender: FDA-Public Use
  Company Number: CN-PFIZER INC-PV202300000067

PATIENT
  Age: 38 Year
  Sex: Male
  Weight: 65 kg

DRUGS (6)
  1. METHOTREXATE SODIUM [Suspect]
     Active Substance: METHOTREXATE SODIUM
     Indication: Haemophagocytic lymphohistiocytosis
     Dosage: 3.6 G, 1X/DAY
     Route: 041
     Dates: start: 20221213, end: 20221213
  2. DEXAMETHASONE [Suspect]
     Active Substance: DEXAMETHASONE
     Indication: Haemophagocytic lymphohistiocytosis
     Dosage: 18 MG, DAILY
     Dates: start: 20221207
  3. DEXAMETHASONE [Suspect]
     Active Substance: DEXAMETHASONE
     Dosage: 12 MG, DAILY
     Dates: start: 20221217
  4. PEGASPARGASE [Concomitant]
     Active Substance: PEGASPARGASE
     Indication: Haemophagocytic lymphohistiocytosis
     Dosage: 3600 IU, 1X/DAY
     Route: 058
     Dates: start: 20221210, end: 20221210
  5. OXALIPLATIN [Concomitant]
     Active Substance: OXALIPLATIN
     Indication: Haemophagocytic lymphohistiocytosis
     Dosage: 180 MG, 1X/DAY (D1,D8)
     Route: 041
     Dates: start: 20221210, end: 20221210
  6. GEMZAR [Concomitant]
     Active Substance: GEMCITABINE HYDROCHLORIDE
     Indication: Haemophagocytic lymphohistiocytosis
     Dosage: 1800 MG, 1X/DAY
     Route: 041
     Dates: start: 20221210, end: 20221210

REACTIONS (5)
  - Renal impairment [Not Recovered/Not Resolved]
  - Gastrointestinal haemorrhage [Unknown]
  - Pyrexia [Unknown]
  - General physical health deterioration [Unknown]
  - Off label use [Unknown]

NARRATIVE: CASE EVENT DATE: 20221201
